FAERS Safety Report 18652551 (Version 2)
Quarter: 2020Q4

REPORT INFORMATION
  Report Type: Spontaneous
  Country: IE (occurrence: IE)
  Receive Date: 20201222
  Receipt Date: 20201228
  Transmission Date: 20210114
  Serious: Yes (Other)
  Sender: FDA-Public Use
  Company Number: IE-BEH-2020126386

PATIENT
  Age: 59 Year
  Sex: Female

DRUGS (13)
  1. PLASMA PROTEIN [Suspect]
     Active Substance: PLASMA PROTEIN FRACTION (HUMAN)
     Indication: LIVER TRANSPLANT
     Dosage: X 6 LGAB ADMINISTERED INTRA OPERATIVELY
     Route: 042
     Dates: start: 20200103
  2. RIASTAP [Suspect]
     Active Substance: FIBRINOGEN HUMAN
     Indication: INTRAOPERATIVE CARE
  3. LANSOPRAZOLE. [Concomitant]
     Active Substance: LANSOPRAZOLE
     Indication: PROPHYLAXIS
     Dosage: 30 MILLIGRAM, QD
  4. GLICLAZIDE [Concomitant]
     Active Substance: GLICLAZIDE
     Indication: DIABETES MELLITUS
     Dosage: 60 MILLIGRAM, QD
  5. ADVAGRAF [Concomitant]
     Active Substance: TACROLIMUS
     Indication: PROPHYLAXIS AGAINST TRANSPLANT REJECTION
     Dosage: 4 MILLIGRAM, QD
  6. AMLODIPINE [Concomitant]
     Active Substance: AMLODIPINE BESYLATE
     Indication: HYPERTENSION
     Dosage: 10 MILLIGRAM, QD
  7. ELTROXIN LF [Concomitant]
     Indication: HYPOTHYROIDISM
     Dosage: 50 MICROGRAM, QD
  8. BISOPROLOL [Concomitant]
     Active Substance: BISOPROLOL
     Indication: HYPERTENSION
     Dosage: 2.5 MILLIGRAM, QD
  9. ASPIRIN [ACETYLSALICYLIC ACID] [Concomitant]
     Active Substance: ASPIRIN
     Indication: CARDIOVASCULAR EVENT PROPHYLAXIS
     Dosage: 75 MILLIGRAM, QD
  10. GALFER [Concomitant]
     Active Substance: IRON
     Indication: IRON DEFICIENCY
     Dosage: 305 MILLIGRAM, QD
  11. FIBRINOGEN [Concomitant]
     Active Substance: FIBRINOGEN HUMAN
     Dosage: UNK
     Dates: start: 20190205, end: 20200107
  12. RIASTAP [Suspect]
     Active Substance: FIBRINOGEN HUMAN
     Indication: LIVER TRANSPLANT
     Dosage: 6 GRAM
     Route: 042
     Dates: start: 20200103
  13. ALLOPURINOL. [Concomitant]
     Active Substance: ALLOPURINOL
     Indication: GOUT
     Dosage: 100 MILLIGRAM

REACTIONS (3)
  - Suspected transmission of an infectious agent via product [Unknown]
  - Hepatitis B [Unknown]
  - Jaundice [Unknown]

NARRATIVE: CASE EVENT DATE: 202010
